FAERS Safety Report 18078975 (Version 3)
Quarter: 2020Q3

REPORT INFORMATION
  Report Type: Spontaneous
  Country: US (occurrence: US)
  Receive Date: 20200728
  Receipt Date: 20200814
  Transmission Date: 20201103
  Serious: Yes (Other)
  Sender: FDA-Public Use
  Company Number: US-BAUSCH-BL-2020-021315

PATIENT
  Age: 69 Year
  Sex: Female
  Weight: 63.56 kg

DRUGS (1)
  1. PLENVU [Suspect]
     Active Substance: ASCORBIC ACID\POLYETHYLENE GLYCOL 3350\POTASSIUM CHLORIDE\SODIUM ASCORBATE\SODIUM CHLORIDE\SODIUM SULFATE
     Indication: BOWEL PREPARATION
     Dosage: FIRST DOSE IN EVENING BEFORE HER COLONOSCOPY, AND THE SECOND DOSE IN MORNING OF HER COLONOSCOPY
     Route: 048
     Dates: start: 20200721, end: 20200722

REACTIONS (4)
  - Blood pressure increased [Unknown]
  - Dehydration [Not Recovered/Not Resolved]
  - Vomiting projectile [Recovered/Resolved]
  - Diarrhoea [Recovered/Resolved]

NARRATIVE: CASE EVENT DATE: 20200722
